FAERS Safety Report 14935245 (Version 1)
Quarter: 2018Q2

REPORT INFORMATION
  Report Type: Report from Study
  Country: US (occurrence: US)
  Receive Date: 20180524
  Receipt Date: 20180524
  Transmission Date: 20180711
  Serious: Yes (Hospitalization)
  Sender: FDA-Public Use
  Company Number: US-UCBSA-2017041796

PATIENT
  Sex: Male

DRUGS (6)
  1. FYCOMPA [Concomitant]
     Active Substance: PERAMPANEL
     Indication: PRODUCT USED FOR UNKNOWN INDICATION
  2. LEVETIRACETAM. [Suspect]
     Active Substance: LEVETIRACETAM
     Indication: SEIZURE
     Dosage: 1125 MG, 2X/DAY (BID) (STRENGTH: 750 MG)
     Route: 048
     Dates: start: 2018
  3. VIMPAT [Suspect]
     Active Substance: LACOSAMIDE
     Indication: SEIZURE
     Dosage: UNK
     Route: 048
     Dates: end: 2018
  4. VIMPAT [Suspect]
     Active Substance: LACOSAMIDE
     Dosage: 300 MG, 2X/DAY (BID)
     Route: 048
     Dates: start: 2018
  5. LEVETIRACETAM. [Suspect]
     Active Substance: LEVETIRACETAM
     Indication: EPILEPSY
     Dosage: UNK
     Route: 048
     Dates: end: 2018
  6. ZONISAMIDE. [Concomitant]
     Active Substance: ZONISAMIDE
     Indication: PRODUCT USED FOR UNKNOWN INDICATION

REACTIONS (6)
  - Weight increased [Unknown]
  - Inflammatory bowel disease [Unknown]
  - Off label use [Unknown]
  - Fall [Unknown]
  - Swelling face [Unknown]
  - Overdose [Unknown]

NARRATIVE: CASE EVENT DATE: 2018
